FAERS Safety Report 25956511 (Version 1)
Quarter: 2025Q4

REPORT INFORMATION
  Report Type: Spontaneous
  Country: US (occurrence: None)
  Receive Date: 20251024
  Receipt Date: 20251024
  Transmission Date: 20260117
  Serious: Yes (Hospitalization)
  Sender: FDA-CTU
  Company Number: None

PATIENT
  Sex: Male

DRUGS (7)
  1. DALFAMPRIDINE [Suspect]
     Active Substance: DALFAMPRIDINE
     Indication: Multiple sclerosis
     Dosage: TAKE 1 TABLET ORALLY TWICE A DAY
     Route: 048
     Dates: start: 20181017
  2. MULTIVITAMIN CAP DAILY [Concomitant]
  3. OCREVUS  INJ 300/1 OML [Concomitant]
  4. OXYBUTYNIN TAB 5MG [Concomitant]
  5. OXYBUTYNIN TAB 5MG ER [Concomitant]
  6. TAMSULOSIN [Concomitant]
     Active Substance: TAMSULOSIN
  7. VITAM1N D3 CAP 1000UNIT [Concomitant]

REACTIONS (2)
  - Urinary tract infection [None]
  - Heart rate increased [None]
